FAERS Safety Report 5500291-X (Version None)
Quarter: 2007Q4

REPORT INFORMATION
  Report Type: 
  Country: None (occurrence: None)
  Receive Date: 20071025
  Receipt Date: 20071012
  Transmission Date: 20080405
  Serious: Yes (Death)
  Sender: FDA-Public Use
  Company Number: MPS1-10767

PATIENT
  Age: 2 Year
  Sex: Female

DRUGS (1)
  1. ALDURAZYME [Suspect]
     Indication: MUCOPOLYSACCHARIDOSIS I
     Dosage: 17.4 MG QWK IV
     Route: 042
     Dates: start: 20060626

REACTIONS (1)
  - STEM CELL TRANSPLANT [None]
